APPROVED DRUG PRODUCT: ZITHROMAX
Active Ingredient: AZITHROMYCIN
Strength: EQ 600MG BASE **Federal Register determination that product was not discontinued or withdrawn for safety or effectiveness reasons**
Dosage Form/Route: TABLET;ORAL
Application: N050730 | Product #001
Applicant: PFIZER CENTRAL RESEARCH
Approved: Jun 12, 1996 | RLD: Yes | RS: No | Type: DISCN